FAERS Safety Report 13516256 (Version 1)
Quarter: 2017Q2

REPORT INFORMATION
  Report Type: Spontaneous
  Country: CA (occurrence: CA)
  Receive Date: 20170505
  Receipt Date: 20170505
  Transmission Date: 20170830
  Serious: Yes (Other)
  Sender: FDA-Public Use
  Company Number: CA-TEVA-764535ACC

PATIENT
  Sex: Female
  Weight: 53.12 kg

DRUGS (3)
  1. IMURAN [Concomitant]
     Active Substance: AZATHIOPRINE
     Dates: start: 201606
  2. PREDNISONE. [Suspect]
     Active Substance: PREDNISONE
     Dosage: 20 MILLIGRAM DAILY; PREDNISONE 20MG: STARTED IN MAR-2017 FOR FLARE UP AND JUST STOPPED NO WEANING
     Route: 048
     Dates: start: 201703, end: 2017
  3. PREDNISONE. [Suspect]
     Active Substance: PREDNISONE
     Indication: COLITIS ULCERATIVE
     Dosage: 20 MILLIGRAM DAILY; PREDNISONE 20MG WEANING 5MG WEEKLY
     Route: 048
     Dates: start: 201702, end: 201703

REACTIONS (1)
  - Colitis ulcerative [Unknown]
